FAERS Safety Report 10985763 (Version 1)
Quarter: 2015Q1

REPORT INFORMATION
  Report Type: Spontaneous
  Country: US (occurrence: None)
  Receive Date: 20150304
  Receipt Date: 20150304
  Transmission Date: 20150721
  Serious: Yes (Other)
  Sender: FDA-Public Use
  Company Number: GBI002130

PATIENT
  Age: 74 Year
  Sex: Male

DRUGS (1)
  1. ALBUTEIN [Suspect]
     Active Substance: ALBUMIN (HUMAN)
     Indication: RADICAL NECK DISSECTION
     Route: 042
     Dates: start: 20100429, end: 20100429

REACTIONS (3)
  - Rash [None]
  - Hypotension [None]
  - Flushing [None]

NARRATIVE: CASE EVENT DATE: 20100429
